FAERS Safety Report 5500577-9 (Version None)
Quarter: 2007Q4

REPORT INFORMATION
  Report Type: 
  Country: None (occurrence: None)
  Receive Date: 20071029
  Receipt Date: 20071022
  Transmission Date: 20080405
  Serious: Yes (Life-Threatening)
  Sender: FDA-Public Use
  Company Number: AT-NOVOPROD-268771

PATIENT

DRUGS (5)
  1. NOVOSEVEN [Suspect]
     Indication: DRUG USE FOR UNKNOWN INDICATION
     Dosage: 14.4 MG, UNK
     Route: 042
     Dates: start: 20071012
  2. NOVOSEVEN [Suspect]
     Dosage: 6.6 UNK, UNK
     Route: 042
     Dates: start: 20071013
  3. SODIUM CHLORIDE [Concomitant]
     Dosage: 1000 ML, UNK
     Route: 042
  4. DIBONDRIN [Concomitant]
     Dosage: 1 VIAL
  5. SOLUDACORTIN [Concomitant]
     Dosage: 250 MG, UNK

REACTIONS (5)
  - ANTI FACTOR VII ANTIBODY POSITIVE [None]
  - BRONCHOSPASM [None]
  - CHEST DISCOMFORT [None]
  - DYSPNOEA [None]
  - HYPOTENSION [None]
